FAERS Safety Report 9139397 (Version 1)
Quarter: 2013Q1

REPORT INFORMATION
  Report Type: Spontaneous
  Country: US (occurrence: US)
  Receive Date: 20130305
  Receipt Date: 20130305
  Transmission Date: 20140127
  Serious: Yes (Other)
  Sender: FDA-Public Use
  Company Number: PHEH2013US002955

PATIENT
  Age: 77 Year
  Sex: Female
  Weight: 79.8 kg

DRUGS (4)
  1. AFINITOR [Suspect]
     Indication: MALIGNANT URINARY TRACT NEOPLASM
     Dosage: 10 MG, DAILY
     Route: 048
     Dates: start: 20121202, end: 20130117
  2. TAMOXIFEN [Concomitant]
     Indication: BREAST CANCER METASTATIC
     Dosage: 20 MG, DAILY
     Route: 048
     Dates: start: 20120731
  3. EFFEXOR [Concomitant]
     Indication: DEPRESSION
     Dosage: 150 MG, DAILY
     Route: 048
  4. INDERAL [Concomitant]
     Indication: HEART RATE IRREGULAR
     Dosage: 120 MG, DAILY
     Route: 048
     Dates: start: 20120731

REACTIONS (8)
  - Malignant neoplasm progression [Unknown]
  - Breast cancer metastatic [Unknown]
  - Malignant urinary tract neoplasm [Unknown]
  - Rash [Recovered/Resolved]
  - Stomatitis [Recovered/Resolved]
  - Cough [Unknown]
  - Fatigue [Unknown]
  - Vomiting [Unknown]
